FAERS Safety Report 19668758 (Version 2)
Quarter: 2021Q3

REPORT INFORMATION
  Report Type: Spontaneous
  Country: FR (occurrence: FR)
  Receive Date: 20210806
  Receipt Date: 20210906
  Transmission Date: 20211014
  Serious: Yes (Other)
  Sender: FDA-Public Use
  Company Number: NVSC2021FR176346

PATIENT
  Age: 35 Year
  Sex: Female

DRUGS (2)
  1. VALACICLOVIR [Suspect]
     Active Substance: VALACYCLOVIR HYDROCHLORIDE
     Indication: CYTOMEGALOVIRUS INFECTION
     Dosage: 4 G, QD (AT 7 PLUS 1 WEEKS OF AMENORRHEA)
     Route: 048
  2. VALACICLOVIR [Suspect]
     Active Substance: VALACYCLOVIR HYDROCHLORIDE
     Dosage: 8 G, QD
     Route: 048

REACTIONS (3)
  - Acute kidney injury [Recovered/Resolved]
  - Product use in unapproved indication [Unknown]
  - Maternal exposure during pregnancy [Unknown]
